FAERS Safety Report 5916335-7 (Version None)
Quarter: 2008Q4

REPORT INFORMATION
  Report Type: 
  Country: None (occurrence: None)
  Receive Date: 20081013
  Receipt Date: 20081009
  Transmission Date: 20090506
  Serious: Yes (Death, Hospitalization, Other)
  Sender: FDA-Public Use
  Company Number: FR-ABBOTT-08P-056-0480827-00

PATIENT
  Sex: Male

DRUGS (7)
  1. DEPAKENE [Suspect]
     Indication: CONVULSION
     Route: 048
     Dates: start: 20060305, end: 20080320
  2. CLONAZEPAM [Concomitant]
     Indication: CONVULSION
     Route: 042
     Dates: start: 20080305
  3. CLOBAZAM [Concomitant]
     Indication: CONVULSION
     Route: 048
     Dates: start: 20080305, end: 20080312
  4. RITONAVIR [Concomitant]
     Indication: ACQUIRED IMMUNODEFICIENCY SYNDROME
     Route: 048
     Dates: start: 20050624
  5. LAMIVUDINE [Concomitant]
     Indication: ACQUIRED IMMUNODEFICIENCY SYNDROME
     Route: 048
     Dates: start: 20080305
  6. SAQUINAVIR [Concomitant]
     Indication: ACQUIRED IMMUNODEFICIENCY SYNDROME
     Route: 048
     Dates: start: 20080305
  7. DIDANOSINE [Concomitant]
     Indication: ACQUIRED IMMUNODEFICIENCY SYNDROME
     Route: 048
     Dates: start: 20080306

REACTIONS (3)
  - MALAISE [None]
  - PANCREATITIS [None]
  - SEPSIS [None]
